FAERS Safety Report 7783760-1 (Version None)
Quarter: 2011Q3

REPORT INFORMATION
  Report Type: 
  Country: None (occurrence: None)
  Receive Date: 20110928
  Receipt Date: 20110919
  Transmission Date: 20111222
  Serious: Yes (Other)
  Sender: FDA-Public Use
  Company Number: US-ELI_LILLY_AND_COMPANY-US201109005086

PATIENT
  Sex: Female
  Weight: 62.132 kg

DRUGS (6)
  1. GLUCOPHAGE [Concomitant]
     Indication: TYPE 2 DIABETES MELLITUS
     Dosage: 1000 MG, BID
     Route: 048
  2. BYETTA [Suspect]
     Indication: TYPE 2 DIABETES MELLITUS
     Dosage: 5 UG, BID
     Route: 058
     Dates: start: 20050101, end: 20050101
  3. BYETTA [Suspect]
     Dosage: 10 UG, BID
     Route: 058
  4. BYETTA [Suspect]
     Dosage: 10 UG, BID
     Route: 058
     Dates: start: 20050101, end: 20080501
  5. BYETTA [Suspect]
     Dosage: 5 UG, BID
     Route: 058
     Dates: start: 20090501, end: 20090601
  6. BYETTA [Suspect]
     Dosage: 5 UG, BID
     Route: 058

REACTIONS (9)
  - DIARRHOEA [None]
  - MOBILITY DECREASED [None]
  - ABNORMAL FAECES [None]
  - ESCHERICHIA INFECTION [None]
  - GASTRIC DISORDER [None]
  - WEIGHT DECREASED [None]
  - FAECAL INCONTINENCE [None]
  - RENAL DISORDER [None]
  - NAUSEA [None]
